FAERS Safety Report 4522277-4 (Version None)
Quarter: 2004Q4

REPORT INFORMATION
  Report Type: 
  Country: None (occurrence: None)
  Receive Date: 20041207
  Receipt Date: 20041119
  Transmission Date: 20050328
  Serious: Yes (Hospitalization)
  Sender: FDA-Public Use
  Company Number: USA041184270

PATIENT
  Age: 73 Year
  Sex: Female
  Weight: 109 kg

DRUGS (4)
  1. HUMULIN N [Suspect]
     Indication: DIABETES MELLITUS
     Dosage: 90 U DAY
     Dates: start: 19950101
  2. HUMULIN R [Suspect]
     Indication: DIABETES MELLITUS
     Dates: start: 20030101
  3. HUMULIN 70/30 [Suspect]
     Indication: DIABETES MELLITUS
     Dates: start: 20030101, end: 20030101
  4. CLOPIDOGREL BISULFATE [Concomitant]

REACTIONS (8)
  - BLOOD GLUCOSE FLUCTUATION [None]
  - CHILLS [None]
  - CORONARY ARTERY OCCLUSION [None]
  - DIZZINESS [None]
  - HUNGER [None]
  - HYPERHIDROSIS [None]
  - MOBILITY DECREASED [None]
  - PHARMACEUTICAL PRODUCT COMPLAINT [None]
